FAERS Safety Report 16208318 (Version 2)
Quarter: 2019Q3

REPORT INFORMATION
  Report Type: Spontaneous
  Country: US (occurrence: US)
  Receive Date: 20190417
  Receipt Date: 20190718
  Transmission Date: 20191004
  Serious: No
  Sender: FDA-Public Use
  Company Number: US-NOVOPROD-650801

PATIENT
  Age: 54 Year
  Sex: Male

DRUGS (1)
  1. FIASP [Suspect]
     Active Substance: INSULIN ASPART
     Indication: DIABETES MELLITUS
     Dosage: UNK
     Route: 065
     Dates: start: 2018

REACTIONS (2)
  - Incorrect dose administered [Unknown]
  - Injection site extravasation [Unknown]

NARRATIVE: CASE EVENT DATE: 2019
